FAERS Safety Report 9993454 (Version 2)
Quarter: 2014Q2

REPORT INFORMATION
  Report Type: Spontaneous
  Country: AU (occurrence: AU)
  Receive Date: 20140310
  Receipt Date: 20140610
  Transmission Date: 20141212
  Serious: Yes (Hospitalization, Other)
  Sender: FDA-Public Use
  Company Number: AU-ABBVIE-14P-008-1210708-00

PATIENT
  Age: 51 Year
  Sex: Female

DRUGS (5)
  1. LIPIDIL [Suspect]
     Indication: BLOOD TRIGLYCERIDES INCREASED
     Dates: start: 201402, end: 20140220
  2. NOTEN [Concomitant]
     Indication: BLOOD PRESSURE
     Dosage: 100 MG
  3. NOTEN [Concomitant]
     Dosage: 50 MG
  4. MICARDIS [Concomitant]
     Indication: PRODUCT USED FOR UNKNOWN INDICATION
     Dosage: 80 MG
  5. MICARDIS [Concomitant]

REACTIONS (4)
  - Renal impairment [Unknown]
  - Malaise [Unknown]
  - Abdominal pain [Unknown]
  - Pain [Unknown]
